FAERS Safety Report 18972328 (Version 1)
Quarter: 2021Q1

REPORT INFORMATION
  Report Type: Spontaneous
  Country: US (occurrence: US)
  Receive Date: 20210304
  Receipt Date: 20210304
  Transmission Date: 20210420
  Serious: No
  Sender: FDA-Public Use
  Company Number: None

PATIENT
  Age: 37 Year
  Sex: Female
  Weight: 45.45 kg

DRUGS (12)
  1. VALIUM [Concomitant]
     Active Substance: DIAZEPAM
  2. BENLYSTA SELF INJECTORS [Concomitant]
  3. VITAMIN B [Concomitant]
     Active Substance: VITAMIN B
  4. NURTEC ODT [Suspect]
     Active Substance: RIMEGEPANT SULFATE
     Indication: MIGRAINE
     Dates: start: 20210303, end: 20210303
  5. ADVIL [Concomitant]
     Active Substance: IBUPROFEN
  6. VITAMIN D [Concomitant]
     Active Substance: VITAMIN D NOS
  7. WELLBUTRIN [Concomitant]
     Active Substance: BUPROPION HYDROCHLORIDE
  8. PRISTIQ EXTENDED?RELEASE [Concomitant]
     Active Substance: DESVENLAFAXINE SUCCINATE
  9. VALACYCLOVIR [Concomitant]
     Active Substance: VALACYCLOVIR HYDROCHLORIDE
  10. MELATONIN [Concomitant]
     Active Substance: MELATONIN
  11. BOTOX [Concomitant]
     Active Substance: ONABOTULINUMTOXINA
  12. PLAQUENIL [Concomitant]
     Active Substance: HYDROXYCHLOROQUINE SULFATE

REACTIONS (4)
  - Nausea [None]
  - Dysuria [None]
  - Sleep disorder [None]
  - Illness [None]

NARRATIVE: CASE EVENT DATE: 20210303
